FAERS Safety Report 9022649 (Version 1)
Quarter: 2013Q1

REPORT INFORMATION
  Report Type: Spontaneous
  Country: US (occurrence: US)
  Receive Date: 20130120
  Receipt Date: 20130120
  Transmission Date: 20140127
  Serious: No
  Sender: FDA-Public Use
  Company Number: US-ASTRAZENECA-2012SE96000

PATIENT
  Sex: 0

DRUGS (4)
  1. CRESTOR [Suspect]
     Route: 048
  2. CRESTOR [Suspect]
     Dosage: GENERIC
     Route: 048
  3. LIPITOR [Suspect]
     Route: 065
  4. ZOCOR [Suspect]
     Route: 065

REACTIONS (3)
  - Biopsy liver abnormal [Unknown]
  - Liver function test abnormal [Unknown]
  - Drug dose omission [Unknown]
